FAERS Safety Report 8233185-X (Version None)
Quarter: 2012Q1

REPORT INFORMATION
  Report Type: 
  Country: None (occurrence: None)
  Receive Date: 20120326
  Receipt Date: 20120319
  Transmission Date: 20120608
  Serious: No
  Sender: FDA-Public Use
  Company Number: US-PFIZER INC-2012052466

PATIENT
  Sex: Female
  Weight: 100 kg

DRUGS (4)
  1. POTASSIUM PENICILLIN G [Suspect]
  2. KEFLEX [Suspect]
  3. POTASSIUM PENICILLIN G [Suspect]
     Indication: INFECTION
     Dosage: UNK
     Route: 030
  4. KEFLEX [Suspect]
     Indication: INFECTION
     Dosage: UNK
     Route: 048

REACTIONS (1)
  - RASH [None]
